FAERS Safety Report 7737902-4 (Version None)
Quarter: 2011Q3

REPORT INFORMATION
  Report Type: 
  Country: None (occurrence: None)
  Receive Date: 20110908
  Receipt Date: 20110902
  Transmission Date: 20111222
  Serious: Yes (Hospitalization)
  Sender: FDA-Public Use
  Company Number: PHHO2010AU07340

PATIENT
  Sex: Male
  Weight: 78 kg

DRUGS (5)
  1. BLINDED NO TREATMENT RECEIVED [Suspect]
     Indication: RENAL TRANSPLANT
     Dosage: 600 MG, UNK
     Route: 048
     Dates: start: 20100318, end: 20100510
  2. PREDNISONE [Suspect]
     Indication: RENAL TRANSPLANT
     Dosage: UNK
  3. TACROLIMUS [Suspect]
     Indication: RENAL TRANSPLANT
     Dosage: UNK
  4. BLINDED AEB071 [Suspect]
     Indication: RENAL TRANSPLANT
     Dosage: 600 MG, UNK
     Route: 048
     Dates: start: 20100318, end: 20100510
  5. MYCOPHENOLIC ACID [Suspect]
     Indication: RENAL TRANSPLANT
     Dosage: 600 MG, UNK
     Route: 048
     Dates: start: 20100318, end: 20100510

REACTIONS (2)
  - BK VIRUS INFECTION [None]
  - POLYOMAVIRUS-ASSOCIATED NEPHROPATHY [None]
